FAERS Safety Report 4319091-1 (Version None)
Quarter: 2004Q1

REPORT INFORMATION
  Report Type: 
  Country: None (occurrence: None)
  Receive Date: 20040316
  Receipt Date: 20040227
  Transmission Date: 20041129
  Serious: Yes (Life-Threatening)
  Sender: FDA-Public Use
  Company Number: FR 2004 0015

PATIENT
  Age: 59 Year
  Sex: Female

DRUGS (1)
  1. DOTAREM - MEGLUMINE GADOTERATE [Suspect]
     Route: 042

REACTIONS (5)
  - BRONCHOSPASM [None]
  - ERYTHEMA [None]
  - FACE OEDEMA [None]
  - HYPOTENSION [None]
  - OEDEMA PERIPHERAL [None]
